FAERS Safety Report 22329633 (Version 1)
Quarter: 2023Q2

REPORT INFORMATION
  Report Type: Other
  Country: US (occurrence: None)
  Receive Date: 20230517
  Receipt Date: 20230517
  Transmission Date: 20230721
  Serious: No
  Sender: FDA-Public Use
  Company Number: US-ROCHE-3226187

PATIENT
  Age: 50 Year
  Sex: Female
  Weight: 108.9 kg

DRUGS (10)
  1. TOCILIZUMAB [Suspect]
     Active Substance: TOCILIZUMAB
     Indication: COVID-19
     Dosage: ON DAY 0
     Route: 042
  2. LEVOFLOXACIN [Concomitant]
     Active Substance: LEVOFLOXACIN
     Dosage: FOR 7 DAYS
     Route: 048
  3. LEVOFLOXACIN [Concomitant]
     Active Substance: LEVOFLOXACIN
     Dosage: WAS STARTED ON DAY 7
     Route: 042
  4. NIVOLUMAB [Concomitant]
     Active Substance: NIVOLUMAB
     Route: 042
  5. REMDESIVIR [Concomitant]
     Active Substance: REMDESIVIR
     Route: 042
  6. REMDESIVIR [Concomitant]
     Active Substance: REMDESIVIR
     Dosage: DAYS 0-9,
     Route: 042
  7. DEXAMETHASONE [Concomitant]
     Active Substance: DEXAMETHASONE
     Dosage: 4 TO 10 MG  FROM DAYS 0-10
     Route: 042
  8. CEFEPIME [Concomitant]
     Active Substance: CEFEPIME HYDROCHLORIDE
     Route: 042
  9. VANCOMYCIN [Concomitant]
     Active Substance: VANCOMYCIN
     Dosage: LOADING DOSE
     Route: 042
  10. VANCOMYCIN [Concomitant]
     Active Substance: VANCOMYCIN
     Route: 042

REACTIONS (2)
  - Off label use [Unknown]
  - No adverse event [Unknown]
